FAERS Safety Report 5537217-9 (Version None)
Quarter: 2007Q4

REPORT INFORMATION
  Report Type: 
  Country: None (occurrence: None)
  Receive Date: 20071207
  Receipt Date: 20071126
  Transmission Date: 20080405
  Serious: Yes (Hospitalization, Other)
  Sender: FDA-Public Use
  Company Number: US-AMGEN-STX247416

PATIENT
  Sex: Female

DRUGS (10)
  1. ENBREL [Suspect]
     Indication: RHEUMATOID ARTHRITIS
     Route: 058
     Dates: start: 20050301, end: 20071001
  2. TRAMADOL HCL [Concomitant]
  3. PRILOSEC [Concomitant]
  4. VITAMIN CAP [Concomitant]
  5. CALCIUM WITH VITAMIN D [Concomitant]
  6. ASPIRIN [Concomitant]
  7. SIMETHICONE [Concomitant]
  8. LIPITOR [Concomitant]
  9. VITAMIN B-12 [Concomitant]
     Route: 048
  10. FOLIC ACID [Concomitant]
     Route: 048

REACTIONS (33)
  - ABDOMINAL DISCOMFORT [None]
  - ABDOMINAL PAIN UPPER [None]
  - ANISOCYTOSIS [None]
  - ANOREXIA [None]
  - CONSTIPATION [None]
  - DIARRHOEA [None]
  - EATING DISORDER [None]
  - ERUCTATION [None]
  - EXOSTOSIS [None]
  - GASTROOESOPHAGEAL REFLUX DISEASE [None]
  - GOUT [None]
  - HAEMATOCRIT DECREASED [None]
  - HAEMOGLOBIN DECREASED [None]
  - HAEMORRHOIDS [None]
  - HAND DEFORMITY [None]
  - HEPATIC ENZYME INCREASED [None]
  - HIATUS HERNIA [None]
  - HYPERGAMMAGLOBULINAEMIA BENIGN MONOCLONAL [None]
  - INTERVERTEBRAL DISC PROTRUSION [None]
  - JOINT SWELLING [None]
  - LIPASE INCREASED [None]
  - LIVER FUNCTION TEST ABNORMAL [None]
  - LYMPHOCYTOSIS [None]
  - NAUSEA [None]
  - OEDEMA PERIPHERAL [None]
  - OSTEOARTHRITIS [None]
  - PAIN IN EXTREMITY [None]
  - PLATELET COUNT INCREASED [None]
  - RECTAL HAEMORRHAGE [None]
  - RHEUMATOID ARTHRITIS [None]
  - SPINAL COLUMN STENOSIS [None]
  - SYNOVITIS [None]
  - VOMITING [None]
